FAERS Safety Report 14954608 (Version 8)
Quarter: 2019Q3

REPORT INFORMATION
  Report Type: Spontaneous
  Country: US (occurrence: US)
  Receive Date: 20180530
  Receipt Date: 20190808
  Transmission Date: 20191004
  Serious: Yes (Hospitalization)
  Sender: FDA-Public Use
  Company Number: US-VIFOR (INTERNATIONAL) INC.-VIT-2018-04941

PATIENT
  Age: 59 Year
  Sex: Male

DRUGS (19)
  1. VELTASSA [Suspect]
     Active Substance: PATIROMER
     Indication: HYPERKALAEMIA
     Route: 048
     Dates: start: 20180216
  2. TERBUTALINE SULFATE. [Concomitant]
     Active Substance: TERBUTALINE SULFATE
  3. MULTIVITAMIN [Concomitant]
     Active Substance: VITAMINS
  4. LEXAPRO [Concomitant]
     Active Substance: ESCITALOPRAM OXALATE
  5. PEPCID AC [Concomitant]
     Active Substance: FAMOTIDINE
  6. SODIUM BICARBONATE. [Concomitant]
     Active Substance: SODIUM BICARBONATE
  7. DIAZEPAM. [Concomitant]
     Active Substance: DIAZEPAM
  8. VALCYTE [Concomitant]
     Active Substance: VALGANCICLOVIR HYDROCHLORIDE
  9. PROGRAF [Concomitant]
     Active Substance: TACROLIMUS\TACROLIMUS ANHYDROUS
  10. PROCARDIA XL [Concomitant]
     Active Substance: NIFEDIPINE
  11. PREDNISONE. [Concomitant]
     Active Substance: PREDNISONE
  12. ZOFRAN [Concomitant]
     Active Substance: ONDANSETRON HYDROCHLORIDE
  13. MIRALAX [Concomitant]
     Active Substance: POLYETHYLENE GLYCOL 3350
  14. LOPRESSOR [Concomitant]
     Active Substance: METOPROLOL TARTRATE
  15. ZYLOPRIM [Concomitant]
     Active Substance: ALLOPURINOL
  16. CELLCEPT [Concomitant]
     Active Substance: MYCOPHENOLATE MOFETIL\MYCOPHENOLATE MOFETIL HYDROCHLORIDE
  17. IMODIUM A-D [Concomitant]
     Active Substance: LOPERAMIDE HYDROCHLORIDE
  18. ASPIRIN. [Concomitant]
     Active Substance: ASPIRIN
  19. VELTASSA [Suspect]
     Active Substance: PATIROMER
     Indication: RENAL TRANSPLANT
     Route: 048
     Dates: start: 201801

REACTIONS (7)
  - White blood cell count decreased [Unknown]
  - Gastric disorder [Unknown]
  - Diarrhoea [Not Recovered/Not Resolved]
  - Viral infection [Unknown]
  - Complications of transplanted kidney [Unknown]
  - Kidney infection [Unknown]
  - Nausea [Unknown]

NARRATIVE: CASE EVENT DATE: 2018
